FAERS Safety Report 12962442 (Version 1)
Quarter: 2016Q4

REPORT INFORMATION
  Report Type: Spontaneous
  Country: US (occurrence: US)
  Receive Date: 20161121
  Receipt Date: 20161121
  Transmission Date: 20170207
  Serious: No
  Sender: FDA-Public Use
  Company Number: US-ALLERGAN-1525876US

PATIENT
  Age: 6 Decade
  Sex: Male

DRUGS (1)
  1. COMBIGAN [Suspect]
     Active Substance: BRIMONIDINE TARTRATE\TIMOLOL MALEATE
     Indication: INTRAOCULAR PRESSURE INCREASED
     Dosage: UNK
     Route: 047
     Dates: start: 2014, end: 2015

REACTIONS (3)
  - Eyelid oedema [Unknown]
  - Eyelids pruritus [Unknown]
  - Erythema of eyelid [Unknown]

NARRATIVE: CASE EVENT DATE: 2015
